FAERS Safety Report 13130040 (Version 6)
Quarter: 2018Q4

REPORT INFORMATION
  Report Type: Spontaneous
  Country: US (occurrence: US)
  Receive Date: 20170119
  Receipt Date: 20181214
  Transmission Date: 20190204
  Serious: Yes (Death, Other)
  Sender: FDA-Public Use
  Company Number: US-ASTRAZENECA-2017SE03781

PATIENT
  Age: 26639 Day
  Sex: Male

DRUGS (61)
  1. NEXIUM [Suspect]
     Active Substance: ESOMEPRAZOLE MAGNESIUM
     Indication: DYSPEPSIA
     Route: 048
     Dates: start: 20120521
  2. NEXIUM [Suspect]
     Active Substance: ESOMEPRAZOLE MAGNESIUM
     Indication: GASTROOESOPHAGEAL REFLUX DISEASE
     Route: 048
     Dates: start: 201003, end: 201502
  3. LASIX [Concomitant]
     Active Substance: FUROSEMIDE
     Indication: POLYURIA
     Dosage: 40.0MG UNKNOWN
     Route: 048
     Dates: start: 20140326
  4. VALIUM [Concomitant]
     Active Substance: DIAZEPAM
     Dosage: 5 MG PO/RECTAL Q 4-6 HRS PRN.
  5. ATIVAN [Concomitant]
     Active Substance: LORAZEPAM
     Dosage: 0.5-2MG PO A 4 HRS PRN
     Route: 048
  6. ATROPINE. [Concomitant]
     Active Substance: ATROPINE
     Dosage: 1%
     Route: 047
  7. MORPHINE [Concomitant]
     Active Substance: MORPHINE
     Dosage: 100/5ML
     Route: 065
  8. DOXYCYCLINE. [Concomitant]
     Active Substance: DOXYCYCLINE
  9. NEXIUM [Suspect]
     Active Substance: ESOMEPRAZOLE MAGNESIUM
     Indication: DYSPEPSIA
     Route: 048
     Dates: start: 201003, end: 201501
  10. NEXIUM [Suspect]
     Active Substance: ESOMEPRAZOLE MAGNESIUM
     Indication: GASTROOESOPHAGEAL REFLUX DISEASE
     Route: 048
     Dates: start: 20120521
  11. NEXIUM [Suspect]
     Active Substance: ESOMEPRAZOLE MAGNESIUM
     Indication: GASTROOESOPHAGEAL REFLUX DISEASE
     Route: 048
     Dates: start: 20120730
  12. ATENOLOL. [Concomitant]
     Active Substance: ATENOLOL
     Dosage: 100.0MG UNKNOWN
     Route: 065
     Dates: start: 20120521
  13. ERYTHROMYCIN. [Concomitant]
     Active Substance: ERYTHROMYCIN
     Indication: EYE INFECTION
     Dates: start: 201208
  14. CEPHALEXIN. [Concomitant]
     Active Substance: CEPHALEXIN
     Indication: BACTERIAL INFECTION
     Dates: start: 200610, end: 201507
  15. VITAMIN D3 [Concomitant]
     Active Substance: CHOLECALCIFEROL
  16. POTASSIUM [Concomitant]
     Active Substance: POTASSIUM
  17. AMLODIPINE [Concomitant]
     Active Substance: AMLODIPINE BESYLATE
     Route: 065
  18. PROMETHAZINE [Concomitant]
     Active Substance: PROMETHAZINE\PROMETHAZINE HYDROCHLORIDE
     Route: 065
  19. ATORVASTATIN [Concomitant]
     Active Substance: ATORVASTATIN
     Indication: BLOOD CHOLESTEROL
     Dosage: 14.0MG UNKNOWN
     Dates: start: 20120618
  20. ATORVASTATIN [Concomitant]
     Active Substance: ATORVASTATIN
     Indication: BLOOD CHOLESTEROL
     Dosage: 40.0MG UNKNOWN
     Route: 048
     Dates: start: 20140325
  21. DIOVAN [Concomitant]
     Active Substance: VALSARTAN
     Indication: HYPERTENSION
     Dates: start: 201004, end: 201104
  22. NEOMYCIN. [Concomitant]
     Active Substance: NEOMYCIN
     Indication: BACTERIAL INFECTION
     Dates: start: 201106
  23. DOXEPIN [Concomitant]
     Active Substance: DOXEPIN
     Route: 048
     Dates: start: 20140513
  24. VITAMIN D [Concomitant]
     Active Substance: CHOLECALCIFEROL
     Dosage: 2000 UNITS DAILY
     Route: 048
  25. ZESTRIL [Concomitant]
     Active Substance: LISINOPRIL
     Indication: HYPERTENSION
     Route: 065
     Dates: start: 20140325
  26. DUONEB [Concomitant]
     Active Substance: ALBUTEROL SULFATE\IPRATROPIUM BROMIDE
  27. NEXIUM [Suspect]
     Active Substance: ESOMEPRAZOLE MAGNESIUM
     Indication: DYSPEPSIA
     Dosage: GENERIC
     Route: 065
     Dates: start: 201503, end: 201509
  28. NEXIUM [Suspect]
     Active Substance: ESOMEPRAZOLE MAGNESIUM
     Indication: GASTROOESOPHAGEAL REFLUX DISEASE
     Dosage: GENERIC
     Route: 065
     Dates: start: 201503, end: 201509
  29. ATORVASTATIN [Concomitant]
     Active Substance: ATORVASTATIN
     Indication: HYPERLIPIDAEMIA
     Dosage: 40.0MG UNKNOWN
     Route: 048
     Dates: start: 20140325
  30. PLAVIX [Concomitant]
     Active Substance: CLOPIDOGREL BISULFATE
     Indication: URINARY BLADDER HAEMORRHAGE
     Dates: start: 200711
  31. CLOPIDOGREL [Concomitant]
     Active Substance: CLOPIDOGREL BISULFATE
     Indication: URINARY BLADDER HAEMORRHAGE
     Dates: start: 200608
  32. POTASSIUM CHLORIDE. [Concomitant]
     Active Substance: POTASSIUM CHLORIDE
     Indication: NUTRITIONAL SUPPLEMENTATION
     Dosage: 10.0MEQ UNKNOWN
     Dates: start: 20140325
  33. NEXIUM [Suspect]
     Active Substance: ESOMEPRAZOLE MAGNESIUM
     Indication: GASTROOESOPHAGEAL REFLUX DISEASE
     Route: 048
     Dates: start: 201003, end: 201501
  34. SPIRONOLACTONE. [Concomitant]
     Active Substance: SPIRONOLACTONE
     Dosage: 25.0MG UNKNOWN
     Dates: start: 20120521
  35. ATENOLOL. [Concomitant]
     Active Substance: ATENOLOL
     Dosage: 100.0MG UNKNOWN
     Route: 048
  36. BENICAR [Concomitant]
     Active Substance: OLMESARTAN MEDOXOMIL
     Indication: HYPERTENSION
     Dates: start: 200602, end: 201003
  37. MELOXICAM. [Concomitant]
     Active Substance: MELOXICAM
     Indication: BACTERIAL INFECTION
     Dates: start: 200906, end: 201006
  38. COUMADIN [Concomitant]
     Active Substance: WARFARIN SODIUM
     Route: 048
  39. HALDOL [Concomitant]
     Active Substance: HALOPERIDOL
     Dosage: 1-2 MG PO/RECTAL Q 2 HRS PRN.
  40. PAXIL [Concomitant]
     Active Substance: PAROXETINE HYDROCHLORIDE
     Dosage: WEEK BY 10 MG/DAY TO 40 MG PER DAY.
  41. CEFTRIAXONE. [Concomitant]
     Active Substance: CEFTRIAXONE
  42. TYLENOL [Concomitant]
     Active Substance: ACETAMINOPHEN
  43. NEXIUM [Suspect]
     Active Substance: ESOMEPRAZOLE MAGNESIUM
     Indication: DYSPEPSIA
     Route: 048
     Dates: start: 20120730
  44. ATORVASTATIN [Concomitant]
     Active Substance: ATORVASTATIN
     Indication: HYPERLIPIDAEMIA
     Dosage: 14.0MG UNKNOWN
     Dates: start: 20120618
  45. HYDROCO/APAP [Concomitant]
     Active Substance: ACETAMINOPHEN\HYDROCODONE
     Dosage: 5-325 MG
     Route: 065
  46. NEXIUM [Suspect]
     Active Substance: ESOMEPRAZOLE MAGNESIUM
     Indication: DYSPEPSIA
     Dosage: GENERIC
     Route: 065
     Dates: start: 20150302
  47. NEXIUM [Suspect]
     Active Substance: ESOMEPRAZOLE MAGNESIUM
     Indication: GASTROOESOPHAGEAL REFLUX DISEASE
     Dosage: GENERIC
     Route: 065
     Dates: start: 20150302
  48. PREDNISONE. [Concomitant]
     Active Substance: PREDNISONE
     Dosage: 10.0MG UNKNOWN
     Dates: start: 20120618
  49. ALLOPURINOL. [Concomitant]
     Active Substance: ALLOPURINOL
     Dates: start: 20120730
  50. LASIX [Concomitant]
     Active Substance: FUROSEMIDE
     Indication: POLYURIA
     Dosage: 20.0MG UNKNOWN
     Route: 065
     Dates: start: 20120521
  51. NEXIUM [Suspect]
     Active Substance: ESOMEPRAZOLE MAGNESIUM
     Indication: DYSPEPSIA
     Route: 048
     Dates: start: 201003, end: 201502
  52. GABAPENTIN. [Concomitant]
     Active Substance: GABAPENTIN
     Dosage: 300.0MG UNKNOWN
     Dates: start: 20120521
  53. DICLOFENAC [Concomitant]
     Active Substance: DICLOFENAC
     Dosage: 10.0MG UNKNOWN
     Dates: start: 20120618
  54. PENICILLIN [Concomitant]
     Active Substance: PENICILLIN
     Indication: BACTERIAL INFECTION
     Dates: start: 200908
  55. ASPIRIN. [Concomitant]
     Active Substance: ASPIRIN
     Indication: BACTERIAL INFECTION
     Route: 048
  56. COUMADIN [Concomitant]
     Active Substance: WARFARIN SODIUM
     Dosage: 5.0MG UNKNOWN
     Route: 048
     Dates: start: 20140416
  57. SYMBICORT [Concomitant]
     Active Substance: BUDESONIDE\FORMOTEROL FUMARATE DIHYDRATE
     Indication: CHRONIC OBSTRUCTIVE PULMONARY DISEASE
     Dosage: 160-4.5 MCG/ACTUATI, 2 PUFFS BID
     Dates: start: 20140325
  58. ISOSORBIDE MONONITRATE. [Concomitant]
     Active Substance: ISOSORBIDE MONONITRATE
     Route: 065
  59. NITROSTAT [Concomitant]
     Active Substance: NITROGLYCERIN
  60. LEVAQUIN [Concomitant]
     Active Substance: LEVOFLOXACIN
  61. PROTONIX [Concomitant]
     Active Substance: PANTOPRAZOLE SODIUM

REACTIONS (4)
  - Renal failure [Unknown]
  - Coronary artery disease [Fatal]
  - Chronic kidney disease [Unknown]
  - Renal impairment [Unknown]

NARRATIVE: CASE EVENT DATE: 20120730
